FAERS Safety Report 8348348-2 (Version None)
Quarter: 2012Q2

REPORT INFORMATION
  Report Type: 
  Country: None (occurrence: None)
  Receive Date: 20120507
  Receipt Date: 20120427
  Transmission Date: 20120825
  Serious: Yes (Other)
  Sender: FDA-Public Use
  Company Number: 1276511

PATIENT
  Age: 55 Year
  Sex: Female

DRUGS (9)
  1. ATENOLOL [Concomitant]
  2. CHLORPHENIRAMINE MALEATE [Concomitant]
  3. (DEXAMETHASONE) [Concomitant]
  4. (SENNA SYRUP) [Concomitant]
  5. PREDNISONE [Concomitant]
  6. CARBOPLATIN [Suspect]
     Indication: OVARIAN EPITHELIAL CANCER
     Dosage: 500 MG, CYCLIC, INTRAVENOUS
     Route: 042
     Dates: start: 20120211, end: 20120411
  7. OMEPRAZOLE [Concomitant]
  8. PACLITAXEL [Concomitant]
  9. ONDANSETRON [Concomitant]

REACTIONS (6)
  - VOMITING [None]
  - HYPOTENSION [None]
  - OXYGEN SATURATION DECREASED [None]
  - OEDEMA PERIPHERAL [None]
  - VERTIGO [None]
  - SWELLING FACE [None]
